FAERS Safety Report 19349826 (Version 1)
Quarter: 2021Q2

REPORT INFORMATION
  Report Type: Spontaneous
  Country: US (occurrence: US)
  Receive Date: 20210531
  Receipt Date: 20210531
  Transmission Date: 20210717
  Serious: Yes (Other)
  Sender: FDA-Public Use
  Company Number: US-TEVA-2021-US-1916031

PATIENT
  Age: 90 Year
  Sex: Male

DRUGS (2)
  1. CARBIDOPA AND LEVODOPA [Suspect]
     Active Substance: CARBIDOPA\LEVODOPA
     Dosage: 1 TABLET
     Dates: start: 20210518
  2. CARBIDOPA AND LEVODOPA [Suspect]
     Active Substance: CARBIDOPA\LEVODOPA
     Dosage: CARBIDOPA AND LEVODOPA 25?100
     Dates: start: 202105

REACTIONS (17)
  - Chromaturia [Recovered/Resolved]
  - Insomnia [Unknown]
  - Abnormal behaviour [Unknown]
  - Hepatic enzyme increased [Not Recovered/Not Resolved]
  - Dyskinesia [Not Recovered/Not Resolved]
  - Mood altered [Not Recovered/Not Resolved]
  - Malnutrition [Not Recovered/Not Resolved]
  - Product use issue [Unknown]
  - Constipation [Recovered/Resolved]
  - Hallucination [Not Recovered/Not Resolved]
  - Hepatic failure [Unknown]
  - Wrong technique in product usage process [Recovered/Resolved]
  - Saliva discolouration [Unknown]
  - Bladder spasm [Unknown]
  - Agitation [Unknown]
  - Somnolence [Not Recovered/Not Resolved]
  - Adverse event [Unknown]

NARRATIVE: CASE EVENT DATE: 202105
